FAERS Safety Report 12575391 (Version 1)
Quarter: 2016Q3

REPORT INFORMATION
  Report Type: Spontaneous
  Country: US (occurrence: US)
  Receive Date: 20160720
  Receipt Date: 20160720
  Transmission Date: 20161109
  Serious: No
  Sender: FDA-Public Use
  Company Number: US-ASTELLAS-2016US012229

PATIENT
  Sex: Male

DRUGS (1)
  1. VESICARE [Suspect]
     Active Substance: SOLIFENACIN SUCCINATE
     Indication: HYPERTONIC BLADDER
     Route: 048

REACTIONS (6)
  - Middle insomnia [Unknown]
  - Drug ineffective [Unknown]
  - Dizziness [Unknown]
  - Sleep disorder [Unknown]
  - Somnolence [Unknown]
  - Nocturia [Unknown]
